FAERS Safety Report 7378330-3 (Version None)
Quarter: 2011Q1

REPORT INFORMATION
  Report Type: 
  Country: None (occurrence: None)
  Receive Date: 20110317
  Receipt Date: 20110310
  Transmission Date: 20110831
  Serious: Yes (Hospitalization)
  Sender: FDA-Public Use
  Company Number: 004713

PATIENT
  Sex: Female
  Weight: 60 kg

DRUGS (27)
  1. VERSED [Concomitant]
  2. BUSPIRONE HCL [Concomitant]
  3. FOLIC ACID [Concomitant]
  4. CALCIUM CARBONATE W/VITAMIN D [Concomitant]
  5. TORADOL [Concomitant]
  6. MUCINEX [Concomitant]
  7. PEPCID [Concomitant]
  8. ASPIRIN [Concomitant]
  9. LORTAB [Concomitant]
  10. NORCO [Concomitant]
  11. CARDIZEM [Concomitant]
  12. IZOFRAN [Concomitant]
  13. ALBUTEROL [Concomitant]
  14. PREDNISONE [Concomitant]
  15. ZOLOFT [Concomitant]
  16. NEXIUM [Concomitant]
  17. AMITRIPTYLINE [Concomitant]
  18. ROCEPHIN [Concomitant]
  19. CERTOLIZUMAB PEGOL [Suspect]
     Indication: RHEUMATOID ARTHRITIS
     Dosage: 200 MG 1X/2 WEEKS SUBCUTANEOUS
     Route: 058
     Dates: start: 20091207, end: 20100304
  20. METOPROLOL [Concomitant]
  21. FENTANYL [Concomitant]
  22. LEVAQUIN [Concomitant]
  23. DEXAMETHASONE [Concomitant]
  24. LEXAPRO [Concomitant]
  25. PHENERGAN HCL [Concomitant]
  26. MECLIZINE [Concomitant]
  27. MACROBID [Concomitant]

REACTIONS (18)
  - RESTRICTIVE PULMONARY DISEASE [None]
  - VULVOVAGINAL CANDIDIASIS [None]
  - VENTRICULAR EXTRASYSTOLES [None]
  - MITRAL VALVE CALCIFICATION [None]
  - MITRAL VALVE INCOMPETENCE [None]
  - SUPRAVENTRICULAR TACHYCARDIA [None]
  - ORGANISING PNEUMONIA [None]
  - IMPAIRED GASTRIC EMPTYING [None]
  - CLOSTRIDIAL INFECTION [None]
  - PNEUMONIA [None]
  - URINARY TRACT INFECTION [None]
  - ANXIETY [None]
  - ASPIRATION [None]
  - BRONCHIECTASIS [None]
  - BRONCHITIS [None]
  - HYPERSENSITIVITY [None]
  - BRONCHIOLITIS [None]
  - TRICUSPID VALVE INCOMPETENCE [None]
